FAERS Safety Report 21053206 (Version 2)
Quarter: 2022Q4

REPORT INFORMATION
  Report Type: Report from Study
  Country: FR (occurrence: FR)
  Receive Date: 20220707
  Receipt Date: 20221227
  Transmission Date: 20230113
  Serious: Yes (Other)
  Sender: FDA-Public Use
  Company Number: FR-VERTEX PHARMACEUTICALS-2021-003633

PATIENT
  Age: 26 Year
  Sex: Female

DRUGS (32)
  1. ELEXACAFTOR\IVACAFTOR\TEZACAFTOR [Suspect]
     Active Substance: ELEXACAFTOR\IVACAFTOR\TEZACAFTOR
     Indication: Cystic fibrosis
     Dosage: UNK
     Route: 048
     Dates: start: 2020
  2. ELEXACAFTOR\IVACAFTOR\TEZACAFTOR [Suspect]
     Active Substance: ELEXACAFTOR\IVACAFTOR\TEZACAFTOR
     Dosage: REINTRODUCED
     Route: 048
     Dates: end: 20210202
  3. KALYDECO [Suspect]
     Active Substance: IVACAFTOR
     Indication: Cystic fibrosis
     Dosage: UNK
     Route: 048
     Dates: start: 2020
  4. KALYDECO [Suspect]
     Active Substance: IVACAFTOR
     Dosage: REINTRODUCED
     Route: 048
     Dates: end: 20210202
  5. CREON [Suspect]
     Active Substance: PANCRELIPASE AMYLASE\PANCRELIPASE LIPASE\PANCRELIPASE PROTEASE
     Indication: Pancreatic failure
     Dosage: 11-16 CAPS DAILY, 160,000 UI/D
     Route: 065
     Dates: end: 20210202
  6. CREON [Suspect]
     Active Substance: PANCRELIPASE AMYLASE\PANCRELIPASE LIPASE\PANCRELIPASE PROTEASE
     Indication: Cystic fibrosis
  7. CREON [Suspect]
     Active Substance: PANCRELIPASE AMYLASE\PANCRELIPASE LIPASE\PANCRELIPASE PROTEASE
     Indication: Infection
  8. AZACTAM [Suspect]
     Active Substance: AZTREONAM
     Indication: Prophylaxis
     Dosage: 6 GRAM
     Route: 065
     Dates: start: 20210127, end: 20210202
  9. AZACTAM [Suspect]
     Active Substance: AZTREONAM
     Indication: Cystic fibrosis
     Dosage: 1 GRAM
     Route: 065
  10. AZACTAM [Suspect]
     Active Substance: AZTREONAM
     Indication: Infection
  11. AZACTAM [Suspect]
     Active Substance: AZTREONAM
     Indication: Pancreatic failure
  12. BRICANYL [Suspect]
     Active Substance: TERBUTALINE SULFATE
     Indication: Cystic fibrosis
     Dosage: 2 DOSAGE FORM, IF NEEDED
  13. BRICANYL [Suspect]
     Active Substance: TERBUTALINE SULFATE
     Indication: Infection
  14. BRICANYL [Suspect]
     Active Substance: TERBUTALINE SULFATE
     Indication: Pancreatic failure
  15. CEFTAZIDIME [Suspect]
     Active Substance: CEFTAZIDIME
     Indication: Infection
     Dosage: 5 G/12 H
     Route: 065
     Dates: start: 20200119, end: 20210127
  16. CEFTAZIDIME [Suspect]
     Active Substance: CEFTAZIDIME
     Indication: Cystic fibrosis
  17. CEFTAZIDIME [Suspect]
     Active Substance: CEFTAZIDIME
     Indication: Pancreatic failure
  18. SODIUM PHOSPHATE [Suspect]
     Active Substance: SODIUM PHOSPHATE
     Indication: Product used for unknown indication
     Dosage: 200 DROP (1/12 ML)
     Route: 065
  19. OMEPRAZOLE [Suspect]
     Active Substance: OMEPRAZOLE
     Indication: Prophylaxis
     Dosage: 40 MG/12 H
     Route: 065
     Dates: end: 20210202
  20. OMEPRAZOLE [Suspect]
     Active Substance: OMEPRAZOLE
     Indication: Cystic fibrosis
  21. OMEPRAZOLE [Suspect]
     Active Substance: OMEPRAZOLE
     Indication: Infection
  22. OMEPRAZOLE [Suspect]
     Active Substance: OMEPRAZOLE
     Indication: Pancreatic failure
  23. CALCIUM PHOSPHATE [Suspect]
     Active Substance: CALCIUM PHOSPHATE
     Indication: Product used for unknown indication
     Route: 065
  24. MAGNESIUM GLYCEROPHOSPHATE [Suspect]
     Active Substance: MAGNESIUM GLYCEROPHOSPHATE
     Indication: Product used for unknown indication
     Route: 065
  25. PHOSPHORIC ACID [Suspect]
     Active Substance: PHOSPHORIC ACID
     Indication: Product used for unknown indication
     Route: 048
  26. .ALPHA.-TOCOPHEROL ACETATE, D- [Suspect]
     Active Substance: .ALPHA.-TOCOPHEROL ACETATE, D-
     Indication: Product used for unknown indication
     Route: 065
  27. AZTREONAM [Concomitant]
     Active Substance: AZTREONAM
     Indication: Product used for unknown indication
     Dosage: 6G PER DAY
  28. INSULIN NOS [Concomitant]
     Active Substance: INSULIN NOS
     Indication: Type 1 diabetes mellitus
     Dosage: 5 UI/D
  29. INSULIN NOS [Concomitant]
     Active Substance: INSULIN NOS
     Dosage: 200 DROP (1/12ML)
  30. CALCIUM PHOSPHATE, DIBASIC, ANHYDROUS\MAGNESIUM GLYCEROPHOSPHATE\PHOSP [Concomitant]
     Active Substance: CALCIUM PHOSPHATE, DIBASIC, ANHYDROUS\MAGNESIUM GLYCEROPHOSPHATE\PHOSPHORIC ACID\SODIUM PHOSPHATE, D
     Indication: Product used for unknown indication
     Dosage: DROP (1/12ML)
  31. .ALPHA.-TOCOPHEROL ACETATE, D- [Concomitant]
     Active Substance: .ALPHA.-TOCOPHEROL ACETATE, D-
     Indication: Product used for unknown indication
  32. CEFTAZIDIME [Concomitant]
     Active Substance: CEFTAZIDIME
     Indication: Product used for unknown indication
     Dosage: UNK
     Dates: start: 20200922, end: 20201007

REACTIONS (2)
  - Premature delivery [Unknown]
  - Exposure during pregnancy [Unknown]

NARRATIVE: CASE EVENT DATE: 20210202
